FAERS Safety Report 8166310-X (Version None)
Quarter: 2012Q1

REPORT INFORMATION
  Report Type: 
  Country: None (occurrence: None)
  Receive Date: 20120227
  Receipt Date: 20110628
  Transmission Date: 20120608
  Serious: No
  Sender: FDA-Public Use
  Company Number: US-MYLANLABS-2011S1011655

PATIENT
  Age: 18 Year
  Sex: Male
  Weight: 77.11 kg

DRUGS (2)
  1. AMNESTEEM [Suspect]
     Indication: ACNE
     Route: 048
     Dates: end: 20110523
  2. CLARAVIS [Suspect]
     Indication: ACNE
     Dates: start: 20101230

REACTIONS (3)
  - WEIGHT DECREASED [None]
  - DIARRHOEA [None]
  - PERSONALITY CHANGE [None]
